FAERS Safety Report 16747527 (Version 1)
Quarter: 2019Q3

REPORT INFORMATION
  Report Type: Report from Study
  Country: ES (occurrence: ES)
  Receive Date: 20190827
  Receipt Date: 20190827
  Transmission Date: 20191005
  Serious: Yes (Hospitalization)
  Sender: FDA-Public Use
  Company Number: ES-TEVA-2019-ES-1097040

PATIENT
  Age: 74 Year
  Sex: Male

DRUGS (4)
  1. IBUPROFENO (1769A) [Interacting]
     Active Substance: IBUPROFEN
     Indication: PAIN
     Dosage: 600 GRAM
     Route: 048
     Dates: start: 20180812, end: 20180812
  2. OMEPRAZOL (2141A) [Concomitant]
     Active Substance: OMEPRAZOLE
     Indication: PROPHYLAXIS
     Dosage: 20 MILLIGRAM
     Route: 048
     Dates: start: 20100906
  3. DICLOFENACO (745A) [Suspect]
     Active Substance: DICLOFENAC
     Indication: PAIN
     Dosage: 150 MILLIGRAM
     Route: 048
     Dates: start: 20180806, end: 20180808
  4. ALDACTONE [Concomitant]
     Active Substance: SPIRONOLACTONE
     Indication: HYPERTENSION
     Dosage: 25 MILLIGRAM
     Route: 048
     Dates: start: 20171122, end: 20180813

REACTIONS (2)
  - Drug interaction [Unknown]
  - Upper gastrointestinal haemorrhage [Recovered/Resolved]

NARRATIVE: CASE EVENT DATE: 20180812
